FAERS Safety Report 9504012 (Version 1)
Quarter: 2013Q3

REPORT INFORMATION
  Report Type: Spontaneous
  Country: US (occurrence: US)
  Receive Date: 20130906
  Receipt Date: 20130906
  Transmission Date: 20140515
  Serious: Yes (Hospitalization)
  Sender: FDA-Public Use
  Company Number: US-PFIZER INC-2013255926

PATIENT
  Age: 80 Year
  Sex: Female
  Weight: 54.42 kg

DRUGS (3)
  1. CELEBREX [Suspect]
     Indication: ARTHRITIS
     Dosage: 200 MG, 1X/DAY
     Dates: start: 2011, end: 2012
  2. CELEBREX [Suspect]
     Indication: ARTHROPATHY
  3. VITAMIN D3 [Concomitant]
     Dosage: 5000 IU, 1X/DAY

REACTIONS (2)
  - Back disorder [Unknown]
  - Pain [Recovering/Resolving]
